FAERS Safety Report 9736058 (Version 1)
Quarter: 2013Q4

REPORT INFORMATION
  Report Type: Spontaneous
  Country: CA (occurrence: CA)
  Receive Date: 20131206
  Receipt Date: 20131206
  Transmission Date: 20140711
  Serious: Yes (Hospitalization)
  Sender: FDA-Public Use
  Company Number: CA-BAYER-2013-145694

PATIENT
  Age: 60 Year
  Sex: Female
  Weight: 90 kg

DRUGS (5)
  1. AVELOX [Suspect]
     Dosage: 400 MG, QD
     Route: 048
  2. ASA [Concomitant]
  3. FLOVENT [Concomitant]
  4. HYDROCHLOROTHIAZIDE W/TELMISARTAN [Concomitant]
  5. VENTOLIN [Concomitant]

REACTIONS (3)
  - Confusional state [Recovered/Resolved]
  - Memory impairment [Recovered/Resolved]
  - Staring [Recovered/Resolved]
